FAERS Safety Report 21606074 (Version 2)
Quarter: 2022Q4

REPORT INFORMATION
  Report Type: Report from Study
  Country: US (occurrence: US)
  Receive Date: 20221117
  Receipt Date: 20221222
  Transmission Date: 20230113
  Serious: Yes (Hospitalization)
  Sender: FDA-Public Use
  Company Number: US-ABBVIE-4202071

PATIENT
  Sex: Female

DRUGS (1)
  1. RINVOQ [Suspect]
     Active Substance: UPADACITINIB
     Indication: Rheumatoid arthritis
     Dosage: ER, 15 MG
     Route: 048
     Dates: start: 202210, end: 2022

REACTIONS (14)
  - Neuralgia [Unknown]
  - Joint range of motion decreased [Unknown]
  - Pain [Unknown]
  - Pain in extremity [Unknown]
  - Herpes zoster [Not Recovered/Not Resolved]
  - Fatigue [Unknown]
  - Dysstasia [Unknown]
  - Rheumatoid arthritis [Unknown]
  - Grip strength decreased [Unknown]
  - Loss of personal independence in daily activities [Unknown]
  - Illness [Unknown]
  - General physical condition abnormal [Unknown]
  - Peripheral swelling [Not Recovered/Not Resolved]
  - Pain in extremity [Not Recovered/Not Resolved]

NARRATIVE: CASE EVENT DATE: 20220101
